FAERS Safety Report 21947134 (Version 3)
Quarter: 2023Q1

REPORT INFORMATION
  Report Type: Report from Study
  Country: US (occurrence: US)
  Receive Date: 20230202
  Receipt Date: 20230223
  Transmission Date: 20230418
  Serious: Yes (Hospitalization, Other)
  Sender: FDA-Public Use
  Company Number: US-BAYER-2023A010260

PATIENT
  Age: 33 Year
  Sex: Female

DRUGS (2)
  1. COPANLISIB [Suspect]
     Active Substance: COPANLISIB
     Indication: Endometrial cancer
     Dosage: UNK
     Dates: start: 20230119
  2. FULVESTRANT [Suspect]
     Active Substance: FULVESTRANT
     Indication: Endometrial cancer
     Dosage: UNK
     Dates: start: 20230119

REACTIONS (4)
  - Pancreatitis [Recovered/Resolved]
  - Hyperglycaemia [Recovered/Resolved]
  - Back pain [Recovered/Resolved]
  - Back pain [Recovered/Resolved]

NARRATIVE: CASE EVENT DATE: 20230120
